FAERS Safety Report 25711259 (Version 1)
Quarter: 2025Q3

REPORT INFORMATION
  Report Type: Spontaneous
  Country: US (occurrence: US)
  Receive Date: 20250821
  Receipt Date: 20250821
  Transmission Date: 20251020
  Serious: No
  Sender: NOBELPHARMA
  Company Number: US-NPA-2025-AER-01406

PATIENT
  Sex: Female

DRUGS (4)
  1. HYFTOR [Suspect]
     Active Substance: SIROLIMUS
     Indication: Tuberous sclerosis complex
     Route: 050
     Dates: start: 20250715
  2. EVEROLIMUS [Concomitant]
     Active Substance: EVEROLIMUS
  3. LAMOTRIGINE [Concomitant]
     Active Substance: LAMOTRIGINE
  4. LAMOTRIGINE [Concomitant]
     Active Substance: LAMOTRIGINE

REACTIONS (4)
  - Dermatitis acneiform [Unknown]
  - Dry skin [Unknown]
  - Pruritus [Unknown]
  - Photosensitivity reaction [Unknown]
